FAERS Safety Report 6683491-5 (Version None)
Quarter: 2010Q2

REPORT INFORMATION
  Report Type: 
  Country: None (occurrence: None)
  Receive Date: 20100415
  Receipt Date: 20080731
  Transmission Date: 20101027
  Serious: Yes (Other)
  Sender: FDA-Public Use
  Company Number: GB-BAXTER-2008BH008098

PATIENT
  Sex: Male

DRUGS (2)
  1. LIDOCAINE HYDROCHLORIDE [Suspect]
     Indication: DENTAL CARE
     Route: 065
     Dates: start: 20061001, end: 20061001
  2. LIDOCAINE HYDROCHLORIDE [Suspect]
     Route: 065
     Dates: start: 20070401, end: 20070401

REACTIONS (1)
  - ANAPHYLACTIC REACTION [None]
